FAERS Safety Report 4426054-4 (Version None)
Quarter: 2004Q3

REPORT INFORMATION
  Report Type: 
  Country: None (occurrence: None)
  Receive Date: 20040810
  Receipt Date: 20040730
  Transmission Date: 20050211
  Serious: Yes (Hospitalization)
  Sender: FDA-Public Use
  Company Number: 2004PK01303

PATIENT
  Age: 63 Year
  Sex: Male
  Weight: 74 kg

DRUGS (4)
  1. CASODEX [Suspect]
     Indication: PROSTATE CANCER
     Dosage: 150 MG DAILY PO
     Route: 048
     Dates: start: 20030701, end: 20040113
  2. CASODEX [Suspect]
     Indication: PROSTATE CANCER
     Dosage: 50 MG DAILY PO
     Route: 048
     Dates: start: 20040114, end: 20040219
  3. ASPIRIN [Suspect]
     Indication: CEREBRAL INFARCTION
     Dosage: 300 MG QD PO
     Route: 048
     Dates: start: 20000801, end: 20040305
  4. LOCOL [Suspect]
     Indication: HYPERLIPIDAEMIA
     Dosage: 20 MG QD PO
     Route: 048
     Dates: end: 20040305

REACTIONS (2)
  - DRUG INTERACTION [None]
  - HEPATITIS TOXIC [None]
